FAERS Safety Report 7488323-3 (Version None)
Quarter: 2011Q2

REPORT INFORMATION
  Report Type: 
  Country: None (occurrence: None)
  Receive Date: 20110518
  Receipt Date: 20110505
  Transmission Date: 20111010
  Serious: Yes (Hospitalization)
  Sender: FDA-Public Use
  Company Number: ES-ELI_LILLY_AND_COMPANY-ES201105001543

PATIENT
  Age: 55 Year
  Sex: Male

DRUGS (2)
  1. DIAZEPAM [Concomitant]
     Indication: DEPRESSION
     Dosage: UNK
     Route: 048
     Dates: start: 20100827, end: 20110221
  2. ZYPREXA [Suspect]
     Indication: DEPRESSION
     Dosage: UNK
     Route: 048
     Dates: start: 20100604, end: 20110221

REACTIONS (2)
  - OFF LABEL USE [None]
  - HYPONATRAEMIA [None]
